FAERS Safety Report 25057225 (Version 2)
Quarter: 2025Q2

REPORT INFORMATION
  Report Type: Spontaneous
  Country: US (occurrence: US)
  Receive Date: 20250310
  Receipt Date: 20250421
  Transmission Date: 20250717
  Serious: No
  Sender: JOHNSON AND JOHNSON
  Company Number: US-JNJFOC-20250267464

PATIENT
  Age: 49 Year
  Sex: Female
  Weight: 57.61 kg

DRUGS (6)
  1. TREMFYA [Suspect]
     Active Substance: GUSELKUMAB
     Indication: Colitis ulcerative
     Route: 058
     Dates: start: 20250124
  2. QULIPTA [Concomitant]
     Active Substance: ATOGEPANT
     Dosage: ROUTE OF ADMINISTRATION: BY MOUTH
  3. CLARITIN [Concomitant]
     Active Substance: LORATADINE
  4. MESALAMINE [Concomitant]
     Active Substance: MESALAMINE
  5. OZEMPIC [Concomitant]
     Active Substance: SEMAGLUTIDE
     Dosage: DOSE: 4MG/ 3ML
  6. PROTONIX [Concomitant]
     Active Substance: PANTOPRAZOLE SODIUM

REACTIONS (2)
  - Liver function test increased [Unknown]
  - Influenza [Unknown]

NARRATIVE: CASE EVENT DATE: 20250221
